FAERS Safety Report 14202684 (Version 2)
Quarter: 2018Q1

REPORT INFORMATION
  Report Type: Report from Study
  Country: None (occurrence: US)
  Receive Date: 20171118
  Receipt Date: 20180131
  Transmission Date: 20180508
  Serious: Yes (Hospitalization, Other)
  Sender: FDA-Public Use
  Company Number: US-ABBVIE-17K-163-2125538-00

PATIENT
  Age: 62 Year
  Sex: Male
  Weight: 83.99 kg

DRUGS (2)
  1. HUMIRA [Suspect]
     Active Substance: ADALIMUMAB
     Indication: CROHN^S DISEASE
     Route: 058
     Dates: start: 2015, end: 201710
  2. OMEPRAZOLE. [Concomitant]
     Active Substance: OMEPRAZOLE
     Indication: BARRETT^S OESOPHAGUS

REACTIONS (15)
  - Bacterial infection [Unknown]
  - Flatulence [Recovered/Resolved]
  - White blood cell count increased [Recovered/Resolved]
  - Defaecation urgency [Not Recovered/Not Resolved]
  - Intestinal prolapse [Recovered/Resolved]
  - Crohn^s disease [Unknown]
  - Dehydration [Unknown]
  - Drug ineffective [Not Recovered/Not Resolved]
  - Ileal stenosis [Unknown]
  - Vomiting [Unknown]
  - Diarrhoea [Recovered/Resolved]
  - Frequent bowel movements [Unknown]
  - Blood potassium decreased [Unknown]
  - Abdominal pain [Recovered/Resolved]
  - Malnutrition [Unknown]

NARRATIVE: CASE EVENT DATE: 2017
